FAERS Safety Report 6613770-9 (Version None)
Quarter: 2010Q1

REPORT INFORMATION
  Report Type: 
  Country: None (occurrence: None)
  Receive Date: 20100304
  Receipt Date: 20100222
  Transmission Date: 20100710
  Serious: Yes (Other)
  Sender: FDA-Public Use
  Company Number: NO-ABBOTT-10P-122-0628036-00

PATIENT
  Sex: Female

DRUGS (4)
  1. VALPROATE SODIUM [Suspect]
     Indication: EPILEPSY
     Route: 048
  2. TOPIRAMATE [Suspect]
     Indication: EPILEPSY
     Route: 048
  3. LEVETIRACETAM [Suspect]
     Indication: EPILEPSY
     Route: 048
  4. LEVETIRACETAM [Suspect]
     Route: 048

REACTIONS (2)
  - CONVULSION [None]
  - DRUG EXPOSURE DURING PREGNANCY [None]
